FAERS Safety Report 19092436 (Version 1)
Quarter: 2021Q2

REPORT INFORMATION
  Report Type: Spontaneous
  Country: FR (occurrence: FR)
  Receive Date: 20210405
  Receipt Date: 20210405
  Transmission Date: 20210717
  Serious: Yes (Death)
  Sender: FDA-Public Use
  Company Number: FR-009507513-2103FRA008136

PATIENT
  Age: 66 Year
  Sex: Female
  Weight: 68 kg

DRUGS (10)
  1. FOLIC ACID. [Concomitant]
     Active Substance: FOLIC ACID
     Dosage: UNK
     Route: 048
  2. VIMPAT [Concomitant]
     Active Substance: LACOSAMIDE
     Dosage: UNK
     Route: 042
     Dates: start: 20210104
  3. TEMODAL [Suspect]
     Active Substance: TEMOZOLOMIDE
     Indication: OLIGODENDROGLIOMA
     Dosage: 130 MILLIGRAM, QD
     Route: 048
     Dates: start: 20201008, end: 20201112
  4. BACTRIM [Concomitant]
     Active Substance: SULFAMETHOXAZOLE\TRIMETHOPRIM
     Dosage: UNK
     Route: 048
  5. RIVOTRIL [Concomitant]
     Active Substance: CLONAZEPAM
     Dosage: CONCENTRATE FOR SOLUTION FOR INJECTION IN AMPOULES
     Route: 042
     Dates: start: 20210104
  6. ACYCLOVIR. [Concomitant]
     Active Substance: ACYCLOVIR
     Dosage: UNK
     Route: 042
     Dates: start: 20210107
  7. TEMODAL [Suspect]
     Active Substance: TEMOZOLOMIDE
     Dosage: 1325 MILLIGRAM, QM
     Route: 048
     Dates: start: 20201224, end: 20201228
  8. DEPAKINE [Concomitant]
     Active Substance: VALPROATE SODIUM
     Dosage: INJECTABLE PREPARATION FOR IV ROUTE
     Route: 042
     Dates: start: 20210104
  9. BRINTELLIX [Concomitant]
     Active Substance: VORTIOXETINE HYDROBROMIDE
     Dosage: UNK
     Route: 048
  10. ONDANSETRON [Concomitant]
     Active Substance: ONDANSETRON
     Dosage: UNK
     Route: 048

REACTIONS (1)
  - Meningoencephalitis herpetic [Fatal]

NARRATIVE: CASE EVENT DATE: 20210107
